FAERS Safety Report 4627054-1 (Version None)
Quarter: 2005Q1

REPORT INFORMATION
  Report Type: 
  Country: None (occurrence: None)
  Receive Date: 20050331
  Receipt Date: 20050318
  Transmission Date: 20050727
  Serious: Yes (Other)
  Sender: FDA-Public Use
  Company Number: 2005046834

PATIENT
  Age: 82 Year
  Sex: Female
  Weight: 45.3597 kg

DRUGS (5)
  1. CELEBREX [Suspect]
     Indication: ARTHRITIS
     Dosage: 200 MG (200 MG, 1 IN 1 D), ORAL
     Route: 048
     Dates: start: 20020101
  2. CALCIUM (CALCIUM) [Concomitant]
  3. IRON (IRON) [Concomitant]
  4. ICAPS (MINERALS NOS, VITALMINS NOS) [Concomitant]
  5. EVISTA [Concomitant]

REACTIONS (7)
  - ABDOMINAL ADHESIONS [None]
  - ARTHRALGIA [None]
  - DIARRHOEA [None]
  - DIFFICULTY IN WALKING [None]
  - DRUG EFFECT DECREASED [None]
  - HEARING IMPAIRED [None]
  - JOINT STIFFNESS [None]
